FAERS Safety Report 13686732 (Version 1)
Quarter: 2017Q2

REPORT INFORMATION
  Report Type: Other
  Country: ES (occurrence: ES)
  Receive Date: 20170623
  Receipt Date: 20170623
  Transmission Date: 20170830
  Serious: Yes (Hospitalization)
  Sender: FDA-Public Use
  Company Number: ES-MERCK KGAA-2022460

PATIENT
  Age: 14 Year
  Sex: Male

DRUGS (1)
  1. NOVOTHYROX [Suspect]
     Active Substance: LEVOTHYROXINE SODIUM
     Indication: PRODUCT USED FOR UNKNOWN INDICATION

REACTIONS (4)
  - Intentional overdose [Unknown]
  - Electrocardiogram J wave abnormal [Recovered/Resolved]
  - Suicide attempt [Unknown]
  - Hyperthyroidism [Recovered/Resolved]
